FAERS Safety Report 8056498-3 (Version None)
Quarter: 2012Q1

REPORT INFORMATION
  Report Type: 
  Country: None (occurrence: None)
  Receive Date: 20120119
  Receipt Date: 20120113
  Transmission Date: 20120608
  Serious: Yes (Other)
  Sender: FDA-Public Use
  Company Number: US-AMGEN-USASP2011065052

PATIENT
  Age: 55 Year
  Sex: Female
  Weight: 46.72 kg

DRUGS (2)
  1. INSULIN [Concomitant]
  2. PROLIA [Suspect]
     Indication: OSTEOPOROSIS POSTMENOPAUSAL
     Dosage: 60 MG, Q6MO
     Route: 058
     Dates: start: 20110712

REACTIONS (1)
  - BLOOD GLUCOSE INCREASED [None]
